FAERS Safety Report 24071540 (Version 1)
Quarter: 2024Q3

REPORT INFORMATION
  Report Type: Report from Study
  Country: GB (occurrence: GB)
  Receive Date: 20240710
  Receipt Date: 20240710
  Transmission Date: 20241017
  Serious: No
  Sender: ROCHE
  Company Number: GB-ROCHE-3200687

PATIENT
  Sex: Female

DRUGS (2)
  1. EVRYSDI [Suspect]
     Active Substance: RISDIPLAM
     Indication: Product used for unknown indication
     Dosage: 6.6 ML
     Route: 065
     Dates: start: 20210324
  2. EVRYSDI [Suspect]
     Active Substance: RISDIPLAM
     Dosage: 6.6 ML
     Route: 065
     Dates: start: 202103

REACTIONS (1)
  - Asthenia [Recovering/Resolving]
